FAERS Safety Report 7510781-6 (Version None)
Quarter: 2011Q2

REPORT INFORMATION
  Report Type: 
  Country: None (occurrence: None)
  Receive Date: 20110530
  Receipt Date: 20110518
  Transmission Date: 20111010
  Serious: Yes (Other)
  Sender: FDA-Public Use
  Company Number: PHHY2011CA31968

PATIENT
  Sex: Female

DRUGS (6)
  1. EXJADE [Suspect]
     Indication: MYELOPROLIFERATIVE DISORDER
     Dosage: 500 MG, QD
     Route: 048
  2. ZOPICLONE [Concomitant]
     Dosage: 7.5 MG, PRN
  3. CHEMOTHERAPEUTICS NOS [Concomitant]
     Indication: NEOPLASM MALIGNANT
  4. EXJADE [Suspect]
     Dosage: 2000 MG, QD
     Route: 048
     Dates: start: 20110514
  5. EXJADE [Suspect]
     Dosage: 750 MG, QD
     Route: 048
  6. MIRTAZAPINE [Concomitant]
     Dosage: 15 MG, PRN
     Dates: start: 20100501

REACTIONS (3)
  - BONE MARROW DISORDER [None]
  - DRUG INEFFECTIVE [None]
  - NEOPLASM MALIGNANT [None]
